FAERS Safety Report 8214497-2 (Version None)
Quarter: 2012Q1

REPORT INFORMATION
  Report Type: 
  Country: None (occurrence: None)
  Receive Date: 20120316
  Receipt Date: 20120316
  Transmission Date: 20120608
  Serious: Yes (Life-Threatening, Hospitalization)
  Sender: FDA-Public Use
  Company Number: None

PATIENT
  Sex: Female
  Weight: 99.79 kg

DRUGS (1)
  1. HUMIRA [Suspect]
     Indication: PSORIASIS
     Dosage: 40MG/0.8ML
     Route: 058
     Dates: start: 20110917, end: 20120210

REACTIONS (4)
  - FATIGUE [None]
  - FEELING ABNORMAL [None]
  - BETA HAEMOLYTIC STREPTOCOCCAL INFECTION [None]
  - STAPHYLOCOCCAL INFECTION [None]
